FAERS Safety Report 6958681-4 (Version None)
Quarter: 2010Q3

REPORT INFORMATION
  Report Type: 
  Country: None (occurrence: None)
  Receive Date: 20100831
  Receipt Date: 20100824
  Transmission Date: 20110219
  Serious: Yes (Other)
  Sender: FDA-Public Use
  Company Number: JP-ABBOTT-10P-087-0663940-00

PATIENT
  Sex: Female

DRUGS (5)
  1. VALPROATE SODIUM [Suspect]
     Indication: CLONIC CONVULSION
  2. CARBAMAZEPINE [Suspect]
     Indication: CLONIC CONVULSION
  3. PHENOBARBITAL [Suspect]
     Indication: CLONIC CONVULSION
     Dosage: 60 MCG/ML
  4. ZONISAMIDE [Concomitant]
     Indication: PRODUCT USED FOR UNKNOWN INDICATION
  5. VITAMIN B6 [Concomitant]
     Indication: PRODUCT USED FOR UNKNOWN INDICATION

REACTIONS (2)
  - DRUG INEFFECTIVE [None]
  - INFANTILE SPASMS [None]
